FAERS Safety Report 10485871 (Version 7)
Quarter: 2015Q1

REPORT INFORMATION
  Report Type: Report from Study
  Country: PL (occurrence: PL)
  Receive Date: 20141001
  Receipt Date: 20150224
  Transmission Date: 20150720
  Serious: Yes (Hospitalization)
  Sender: FDA-Public Use
  Company Number: PL-BIOGENIDEC-2014BI081221

PATIENT
  Age: 43 Year
  Sex: Female
  Weight: 51 kg

DRUGS (14)
  1. AMOKSICLAV [Concomitant]
  2. 0.9% NACL [Concomitant]
     Active Substance: SODIUM CHLORIDE
  3. METYPRED [Concomitant]
     Active Substance: METHYLPREDNISOLONE
  4. KALIPOZ [Concomitant]
     Active Substance: POTASSIUM CHLORIDE
     Dosage: DOSE UNIT:2
  5. BIIB017 [Suspect]
     Active Substance: PEGINTERFERON BETA-1A
     Indication: MULTIPLE SCLEROSIS
     Route: 058
     Dates: start: 20130830, end: 20140411
  6. BISOCARD [Concomitant]
     Active Substance: BISOPROLOL
  7. METYPRED [Concomitant]
     Active Substance: METHYLPREDNISOLONE
  8. FUROSEMIDE. [Concomitant]
     Active Substance: FUROSEMIDE
  9. IPP [Concomitant]
     Active Substance: PANTOPRAZOLE SODIUM
  10. PARACETAMOL [Concomitant]
     Active Substance: ACETAMINOPHEN
  11. SOL-MEDROL [Concomitant]
  12. METYPRED [Concomitant]
     Active Substance: METHYLPREDNISOLONE
  13. DEPAKINE CHRONO [Concomitant]
     Active Substance: VALPROATE SODIUM
     Dosage: DOSE UNIT:2
  14. CIPRONEX [Concomitant]
     Active Substance: CIPROFLOXACIN

REACTIONS (1)
  - Systemic lupus erythematosus [Unknown]

NARRATIVE: CASE EVENT DATE: 20140709
